FAERS Safety Report 21702971 (Version 1)
Quarter: 2022Q4

REPORT INFORMATION
  Report Type: Report from Study
  Country: US (occurrence: US)
  Receive Date: 20221209
  Receipt Date: 20221209
  Transmission Date: 20230113
  Serious: No
  Sender: FDA-Public Use
  Company Number: US-ABBVIE-22K-163-4514390-00

PATIENT
  Sex: Female

DRUGS (4)
  1. HUMIRA [Suspect]
     Active Substance: ADALIMUMAB
     Indication: Rheumatoid arthritis
     Dosage: CITRATE FREE
     Route: 058
  2. HUMIRA [Suspect]
     Active Substance: ADALIMUMAB
     Dosage: CITRATE FREE
     Route: 058
  3. PFIZER-BIONTECH COVID-19 VACCINE [Concomitant]
     Active Substance: TOZINAMERAN
     Indication: COVID-19 immunisation
     Dosage: TIME INTERVAL: TOTAL: IST DOSE
     Route: 030
     Dates: start: 20210416, end: 20210416
  4. PFIZER-BIONTECH COVID-19 VACCINE [Concomitant]
     Active Substance: TOZINAMERAN
     Indication: COVID-19 immunisation
     Dosage: TIME INTERVAL: TOTAL: 2ND DOSE
     Route: 030
     Dates: start: 20211214, end: 20211214

REACTIONS (15)
  - Limb injury [Not Recovered/Not Resolved]
  - Neck injury [Not Recovered/Not Resolved]
  - Fall [Unknown]
  - Neck pain [Unknown]
  - Pain in extremity [Unknown]
  - Dysstasia [Unknown]
  - Haematemesis [Unknown]
  - Fatigue [Unknown]
  - Malaise [Unknown]
  - Malaise [Unknown]
  - Psoriasis [Unknown]
  - Stress [Unknown]
  - Arthralgia [Unknown]
  - Cough [Unknown]
  - Peripheral venous disease [Unknown]
